FAERS Safety Report 8144215-8 (Version None)
Quarter: 2012Q1

REPORT INFORMATION
  Report Type: 
  Country: None (occurrence: None)
  Receive Date: 20120217
  Receipt Date: 20120216
  Transmission Date: 20120608
  Serious: Yes (Hospitalization)
  Sender: FDA-Public Use
  Company Number: US-TEVA-322927USA

PATIENT
  Age: 60 Year
  Sex: Female
  Weight: 93.524 kg

DRUGS (2)
  1. TREANDA [Suspect]
     Indication: CHRONIC LYMPHOCYTIC LEUKAEMIA
     Dosage: DAY 1 + 2 OF EACH CYCLE
     Route: 042
     Dates: start: 20111012, end: 20120105
  2. RITUXIMAB [Suspect]
     Indication: CHRONIC LYMPHOCYTIC LEUKAEMIA
     Dosage: DAY 1 EACH CYCLE
     Route: 042
     Dates: start: 20110907, end: 20120112

REACTIONS (4)
  - RENAL FAILURE ACUTE [None]
  - ATELECTASIS [None]
  - ATRIAL FIBRILLATION [None]
  - PYREXIA [None]
